FAERS Safety Report 5146864-8 (Version None)
Quarter: 2006Q4

REPORT INFORMATION
  Report Type: 
  Country: None (occurrence: None)
  Receive Date: 20061109
  Receipt Date: 20041203
  Transmission Date: 20070319
  Serious: Yes (Other)
  Sender: FDA-Public Use
  Company Number: GB-GLAXOSMITHKLINE-B0360211A

PATIENT
  Sex: Female

DRUGS (2)
  1. PAROXETINE HYDROCHLORIDE [Suspect]
     Indication: DEPRESSION
     Dosage: 20MG PER DAY
     Route: 065
     Dates: start: 19991101
  2. PAROXETINE HYDROCHLORIDE [Suspect]
     Route: 048
     Dates: start: 20050101

REACTIONS (17)
  - AGGRESSION [None]
  - ANGER [None]
  - DEPRESSION [None]
  - DRUG WITHDRAWAL SYNDROME [None]
  - DYSPHEMIA [None]
  - DYSSOMNIA [None]
  - EMOTIONAL DISORDER [None]
  - FEAR [None]
  - HYPOAESTHESIA [None]
  - IRRITABILITY [None]
  - MOOD ALTERED [None]
  - MOOD SWINGS [None]
  - NERVOUSNESS [None]
  - PARAESTHESIA [None]
  - STRESS [None]
  - TREMOR [None]
  - VISION BLURRED [None]
